FAERS Safety Report 6945024-5 (Version None)
Quarter: 2010Q3

REPORT INFORMATION
  Report Type: 
  Country: None (occurrence: None)
  Receive Date: 20100827
  Receipt Date: 20100826
  Transmission Date: 20110219
  Serious: Yes (Other)
  Sender: FDA-Public Use
  Company Number: US-NAPPMUNDI-USA-2010-0045727

PATIENT
  Sex: Male

DRUGS (1)
  1. OXYCONTIN [Suspect]
     Indication: PAIN
     Dosage: 320 MG, TWICE
     Dates: start: 20100817

REACTIONS (6)
  - CHOKING [None]
  - FOREIGN BODY [None]
  - INTENTIONAL DRUG MISUSE [None]
  - PHARYNGEAL INJURY [None]
  - PRODUCT COATING ISSUE [None]
  - RETCHING [None]
